FAERS Safety Report 7929163-8 (Version None)
Quarter: 2011Q4

REPORT INFORMATION
  Report Type: 
  Country: None (occurrence: None)
  Receive Date: 20111120
  Receipt Date: 20111109
  Transmission Date: 20120403
  Serious: Yes (Death, Hospitalization)
  Sender: FDA-Public Use
  Company Number: ES-ELI_LILLY_AND_COMPANY-ES201111003097

PATIENT
  Sex: Female
  Weight: 65 kg

DRUGS (1)
  1. FORTEO [Suspect]
     Indication: OSTEOPOROSIS
     Dosage: 20 UG, QD
     Route: 058
     Dates: start: 20110507, end: 20111013

REACTIONS (2)
  - DEATH [None]
  - BRONCHIECTASIS [None]
